FAERS Safety Report 21498674 (Version 3)
Quarter: 2022Q4

REPORT INFORMATION
  Report Type: Spontaneous
  Country: TR (occurrence: TR)
  Receive Date: 20221024
  Receipt Date: 20221115
  Transmission Date: 20230113
  Serious: Yes (Other)
  Sender: FDA-Public Use
  Company Number: TR-NOVARTISPH-NVSC2022TR234897

PATIENT
  Age: 27 Year
  Sex: Male

DRUGS (2)
  1. DICLOFENAC SODIUM [Suspect]
     Active Substance: DICLOFENAC SODIUM
     Indication: Myalgia
     Dosage: 50 MG, QD
     Route: 065
  2. DICLOFENAC SODIUM [Suspect]
     Active Substance: DICLOFENAC SODIUM
     Dosage: 750 MG (15 TABLET)
     Route: 065

REACTIONS (6)
  - Suicide attempt [Recovered/Resolved]
  - Gastrointestinal tract irritation [Recovered/Resolved]
  - Haemorrhage [Recovered/Resolved]
  - Nephropathy toxic [Recovered/Resolved]
  - Hepatotoxicity [Recovered/Resolved]
  - Intentional overdose [Unknown]
